FAERS Safety Report 8284681-0 (Version None)
Quarter: 2012Q2

REPORT INFORMATION
  Report Type: 
  Country: None (occurrence: None)
  Receive Date: 20120413
  Receipt Date: 20110421
  Transmission Date: 20120825
  Serious: No
  Sender: FDA-Public Use
  Company Number: US-ASTRAZENECA-2011SE22900

PATIENT
  Sex: Female

DRUGS (2)
  1. NEXIUM [Suspect]
     Route: 048
  2. ANTIDEPRESSANTS [Concomitant]

REACTIONS (9)
  - GASTROOESOPHAGEAL REFLUX DISEASE [None]
  - DRUG DOSE OMISSION [None]
  - VOMITING [None]
  - GASTRIC DISORDER [None]
  - NERVOUSNESS [None]
  - APHAGIA [None]
  - PAIN [None]
  - ABDOMINAL PAIN UPPER [None]
  - STRESS [None]
